FAERS Safety Report 25100017 (Version 2)
Quarter: 2025Q1

REPORT INFORMATION
  Report Type: Spontaneous
  Country: GB (occurrence: GB)
  Receive Date: 20250320
  Receipt Date: 20250324
  Transmission Date: 20250409
  Serious: Yes (Other)
  Sender: PFIZER
  Company Number: None

PATIENT
  Age: 62 Year
  Sex: Male
  Weight: 55 kg

DRUGS (2)
  1. RIMEGEPANT [Interacting]
     Active Substance: RIMEGEPANT
     Indication: Migraine
  2. RIMEGEPANT [Interacting]
     Active Substance: RIMEGEPANT

REACTIONS (5)
  - Extrasystoles [Recovered/Resolved]
  - Dizziness [Recovered/Resolved]
  - Nausea [Recovered/Resolved]
  - Cold sweat [Recovered/Resolved]
  - Food interaction [Recovered/Resolved]

NARRATIVE: CASE EVENT DATE: 20250305
